FAERS Safety Report 10050906 (Version 1)
Quarter: 2014Q2

REPORT INFORMATION
  Report Type: Report from Study
  Country: US (occurrence: US)
  Receive Date: 20140401
  Receipt Date: 20140401
  Transmission Date: 20141212
  Serious: Yes (Hospitalization)
  Sender: FDA-Public Use
  Company Number: US-GLAXOSMITHKLINE-A1062433A

PATIENT
  Age: 70 Year
  Sex: Male
  Weight: 78.5 kg

DRUGS (8)
  1. PAZOPANIB [Suspect]
     Indication: LIPOSARCOMA METASTATIC
     Dosage: 800MG PER DAY
     Route: 048
     Dates: start: 20131206
  2. CLONAZEPAM [Concomitant]
     Indication: RESTLESS LEGS SYNDROME
     Dosage: .5MG PER DAY
     Route: 048
     Dates: start: 2011
  3. DIGOXIN [Concomitant]
     Indication: ATRIAL FIBRILLATION
     Dosage: .125MG PER DAY
     Route: 048
     Dates: start: 2007
  4. METOPROLOL [Concomitant]
     Indication: ATRIAL FIBRILLATION
     Dosage: 12.5MG PER DAY
     Route: 048
     Dates: start: 2007
  5. VIAGRA [Concomitant]
     Indication: ERECTILE DYSFUNCTION
     Dosage: 25MG AS REQUIRED
     Route: 048
     Dates: start: 2010
  6. WARFARIN [Concomitant]
     Indication: ATRIAL FIBRILLATION
     Dosage: 4MG PER DAY
     Route: 048
     Dates: start: 2007
  7. WARFARIN [Concomitant]
     Indication: ATRIAL FIBRILLATION
     Dosage: 5MG PER DAY
     Route: 048
     Dates: start: 2007
  8. PAXIL [Concomitant]
     Indication: DEPRESSION
     Dosage: 20MG PER DAY

REACTIONS (1)
  - Depressed level of consciousness [Recovered/Resolved]
